FAERS Safety Report 6905969-9 (Version None)
Quarter: 2010Q3

REPORT INFORMATION
  Report Type: 
  Country: None (occurrence: None)
  Receive Date: 20100802
  Receipt Date: 20100715
  Transmission Date: 20110219
  Serious: Yes (Other)
  Sender: FDA-Public Use
  Company Number: 2010S1000521

PATIENT
  Age: 61 Year
  Sex: Male

DRUGS (6)
  1. LIVALO [Suspect]
     Indication: HYPERCHOLESTEROLAEMIA
     Dosage: 2 MG; 1X; PO
     Route: 048
     Dates: start: 20100108, end: 20100611
  2. NARCARICIN [Concomitant]
  3. POTOREND [Concomitant]
  4. METOLATE [Concomitant]
  5. MEDROL [Concomitant]
  6. NEUER [Concomitant]

REACTIONS (4)
  - ALANINE AMINOTRANSFERASE INCREASED [None]
  - ASPARTATE AMINOTRANSFERASE INCREASED [None]
  - GAMMA-GLUTAMYLTRANSFERASE INCREASED [None]
  - RHEUMATOID FACTOR INCREASED [None]
